FAERS Safety Report 25438296 (Version 2)
Quarter: 2025Q3

REPORT INFORMATION
  Report Type: Spontaneous
  Country: US (occurrence: US)
  Receive Date: 20250616
  Receipt Date: 20250703
  Transmission Date: 20251021
  Serious: No
  Sender: BOEHRINGER INGELHEIM
  Company Number: US-Komodo Health-a23aa0000089hSXAAY

PATIENT
  Sex: Male

DRUGS (1)
  1. JARDIANCE [Suspect]
     Active Substance: EMPAGLIFLOZIN
     Indication: Product used for unknown indication

REACTIONS (7)
  - Photophobia [Unknown]
  - Product prescribing error [Unknown]
  - Lip swelling [Unknown]
  - Personality change [Unknown]
  - Somnolence [Unknown]
  - Abdominal distension [Unknown]
  - Product physical issue [Unknown]
